FAERS Safety Report 8216019-9 (Version None)
Quarter: 2012Q1

REPORT INFORMATION
  Report Type: 
  Country: None (occurrence: None)
  Receive Date: 20120313
  Receipt Date: 20120223
  Transmission Date: 20120608
  Serious: Yes (Hospitalization, Other)
  Sender: FDA-Public Use
  Company Number: 2012P1003309

PATIENT
  Age: 73 Year
  Sex: Male
  Weight: 90.7194 kg

DRUGS (7)
  1. VITAMIN D [Concomitant]
  2. LISINOPRIL [Concomitant]
  3. TRIAMCINOLONE ACETONIDE OINTMENT (FOUGERA) (NOPRE. NAME) [Concomitant]
  4. UNSPECIFIED PAIN KILLERS (NO PREF. NAME) [Concomitant]
  5. TERAZOSIN HCL [Concomitant]
  6. FLUOROURACIL [Suspect]
     Indication: PRECANCEROUS SKIN LESION
     Dosage: BID; TOPICAL
     Route: 061
     Dates: start: 20120101, end: 20120101
  7. CLOTRIMAZOLE AND BETAMETHASONE DIPROPIONATE [Suspect]
     Indication: TESTICULAR DISORDER
     Dates: start: 20120101, end: 20120101

REACTIONS (11)
  - WRONG TECHNIQUE IN DRUG USAGE PROCESS [None]
  - FEELING ABNORMAL [None]
  - ORCHITIS NONINFECTIVE [None]
  - PAIN [None]
  - NO THERAPEUTIC RESPONSE [None]
  - CHEMICAL INJURY [None]
  - BURNING SENSATION [None]
  - RESTLESSNESS [None]
  - ACCIDENTAL EXPOSURE [None]
  - INSOMNIA [None]
  - SKIN DISORDER [None]
